FAERS Safety Report 16751017 (Version 1)
Quarter: 2019Q3

REPORT INFORMATION
  Report Type: Spontaneous
  Country: US (occurrence: US)
  Receive Date: 20190828
  Receipt Date: 20190828
  Transmission Date: 20191005
  Serious: Yes (Other)
  Sender: FDA-Public Use
  Company Number: US-PFIZER INC-2019369310

PATIENT
  Age: 16 Year
  Sex: Female
  Weight: 57 kg

DRUGS (1)
  1. DEPO-PROVERA [Suspect]
     Active Substance: MEDROXYPROGESTERONE ACETATE
     Dosage: UNK, EVERY 3 MONTHS
     Route: 030
     Dates: start: 2004, end: 2007

REACTIONS (7)
  - Appendicitis perforated [Unknown]
  - Off label use [Unknown]
  - Injection site hypertrophy [Not Recovered/Not Resolved]
  - Product use in unapproved indication [Unknown]
  - Hypoaesthesia [Not Recovered/Not Resolved]
  - Infertility [Recovered/Resolved with Sequelae]
  - Menstrual disorder [Unknown]

NARRATIVE: CASE EVENT DATE: 2004
